FAERS Safety Report 7837734 (Version 3)
Quarter: 2013Q2

REPORT INFORMATION
  Report Type: Spontaneous
  Country: US (occurrence: US)
  Receive Date: 20110302
  Receipt Date: 20130621
  Transmission Date: 20140414
  Serious: Yes (Hospitalization, Other)
  Sender: FDA-Public Use
  Company Number: US-PFIZER INC-2009305726

PATIENT
  Age: 21 Year
  Sex: Male

DRUGS (4)
  1. DILANTIN [Suspect]
     Indication: CONVULSION
     Dosage: 100 MG TWO CAPSULES DAILY AT BED TIME
     Route: 048
     Dates: start: 20041105, end: 20041107
  2. DILANTIN [Suspect]
     Dosage: 100 MG, 3X/DAY
     Route: 048
     Dates: start: 20041108, end: 20041124
  3. BENICAR [Concomitant]
     Indication: HYPERTENSION
     Dosage: 20 MG DAILY
     Dates: start: 200409, end: 20041128
  4. BENICAR [Concomitant]
     Dosage: 40 MG, 1X/DAY
     Route: 048

REACTIONS (1)
  - Stevens-Johnson syndrome [Recovering/Resolving]
